FAERS Safety Report 6383585-8 (Version None)
Quarter: 2009Q4

REPORT INFORMATION
  Report Type: 
  Country: None (occurrence: None)
  Receive Date: 20091001
  Receipt Date: 20090928
  Transmission Date: 20100525
  Serious: Yes (Death)
  Sender: FDA-Public Use
  Company Number: PHHY2009BR33515

PATIENT
  Sex: Female

DRUGS (1)
  1. DIOVAN [Suspect]
     Dosage: 160 MG, ONCE WEEK
     Dates: start: 20060901

REACTIONS (3)
  - DEATH [None]
  - HEADACHE [None]
  - HYPERTENSION [None]
